FAERS Safety Report 5946890-2 (Version None)
Quarter: 2008Q4

REPORT INFORMATION
  Report Type: 
  Country: None (occurrence: None)
  Receive Date: 20081107
  Receipt Date: 20081107
  Transmission Date: 20090506
  Serious: Yes (Other)
  Sender: FDA-Public Use
  Company Number: None

PATIENT
  Age: 47 Year
  Sex: Female
  Weight: 99 kg

DRUGS (2)
  1. DILAUDID [Suspect]
     Indication: PAIN
     Dosage: 1 MG EVERY 15 MIN X4 IV
     Route: 042
     Dates: start: 20080813, end: 20080813
  2. DILAUDID [Suspect]
     Indication: PAIN
     Dosage: 0.5 MG EVERY 6 MIN X8 IV
     Route: 042
     Dates: start: 20080813, end: 20080813

REACTIONS (3)
  - APNOEA [None]
  - CARDIO-RESPIRATORY ARREST [None]
  - RESPIRATORY DEPRESSION [None]
